FAERS Safety Report 9630992 (Version 2)
Quarter: 2013Q4

REPORT INFORMATION
  Report Type: Spontaneous
  Country: US (occurrence: None)
  Receive Date: 20131015
  Receipt Date: 20131017
  Transmission Date: 20140711
  Serious: Yes (Other)
  Sender: FDA-Public Use
  Company Number: AUR-APL-2013-08395

PATIENT
  Age: 25 Year
  Sex: Male

DRUGS (4)
  1. RISPERIDONE [Suspect]
     Indication: SCHIZOAFFECTIVE DISORDER
  2. ARIPIPRAZOLE [Suspect]
     Indication: SCHIZOAFFECTIVE DISORDER
  3. LITHIUM (LITHIUM) [Suspect]
     Indication: SCHIZOAFFECTIVE DISORDER
  4. ASENAPINE [Suspect]
     Indication: SCHIZOAFFECTIVE DISORDER
     Dosage: 10 MG (5 MG, 2 IN 1 D), SUBLINGUAL
     Route: 060

REACTIONS (7)
  - Restlessness [None]
  - Irritability [None]
  - Anxiety [None]
  - Akathisia [None]
  - Drug ineffective [None]
  - Panic reaction [None]
  - Sexual dysfunction [None]
